FAERS Safety Report 7864984-1 (Version None)
Quarter: 2011Q4

REPORT INFORMATION
  Report Type: 
  Country: None (occurrence: None)
  Receive Date: 20111028
  Receipt Date: 20100927
  Transmission Date: 20120403
  Serious: No
  Sender: FDA-Public Use
  Company Number: US-GLAXOSMITHKLINE-A0883524A

PATIENT
  Age: 93 Year
  Sex: Female

DRUGS (8)
  1. POTASSIUM CHLORIDE [Concomitant]
  2. ADVAIR DISKUS 100/50 [Suspect]
     Indication: ASTHMA
     Dosage: 1PUFF TWICE PER DAY
     Route: 055
     Dates: start: 20100926
  3. LOSARTAN POTASSIUM [Concomitant]
  4. ASPIRIN [Concomitant]
  5. BECLOMETHASONE DIPROPIONATE [Concomitant]
  6. FUROSEMIDE [Concomitant]
  7. AMLODIPINE [Concomitant]
  8. ALBUTEROL [Concomitant]

REACTIONS (1)
  - HEADACHE [None]
